FAERS Safety Report 6735156-9 (Version None)
Quarter: 2010Q2

REPORT INFORMATION
  Report Type: 
  Country: None (occurrence: None)
  Receive Date: 20100519
  Receipt Date: 20100519
  Transmission Date: 20101027
  Serious: No
  Sender: FDA-Public Use
  Company Number: None

PATIENT
  Age: 55 Year
  Sex: Female
  Weight: 103.4201 kg

DRUGS (2)
  1. TYLENOL W/ CODEINE NO. 4 [Suspect]
     Indication: BACK PAIN
     Dosage: 1 TABLET 3X DAILY
  2. TYLENOL W/ CODEINE NO. 4 [Suspect]
     Indication: SURGERY

REACTIONS (2)
  - DRUG EFFECT DECREASED [None]
  - PRODUCT SUBSTITUTION ISSUE [None]
